FAERS Safety Report 24563383 (Version 1)
Quarter: 2024Q4

REPORT INFORMATION
  Report Type: Spontaneous
  Country: DE (occurrence: DE)
  Receive Date: 20241030
  Receipt Date: 20241030
  Transmission Date: 20250115
  Serious: Yes (Other)
  Sender: ROCHE
  Company Number: None

PATIENT
  Age: 59 Year
  Sex: Female
  Weight: 73 kg

DRUGS (2)
  1. OCREVUS [Suspect]
     Active Substance: OCRELIZUMAB
     Indication: Multiple sclerosis
     Dosage: 600
     Route: 042
     Dates: start: 2020, end: 20240320
  2. RILTOZINAMERAN\TOZINAMERAN [Suspect]
     Active Substance: RILTOZINAMERAN\TOZINAMERAN
     Indication: COVID-19 immunisation
     Dosage: 15MG TOZINAMERAN/15MG RITOZINAMERAN
     Route: 042
     Dates: start: 20220923

REACTIONS (3)
  - Hallucination [Not Recovered/Not Resolved]
  - Melkersson-Rosenthal syndrome [Not Recovered/Not Resolved]
  - Cough [Not Recovered/Not Resolved]
